FAERS Safety Report 7896040-0 (Version None)
Quarter: 2011Q4

REPORT INFORMATION
  Report Type: 
  Country: None (occurrence: None)
  Receive Date: 20111106
  Receipt Date: 20110902
  Transmission Date: 20120403
  Serious: No
  Sender: FDA-Public Use
  Company Number: US-AMGEN-USASP2011045272

PATIENT
  Sex: Female

DRUGS (6)
  1. ENBREL [Suspect]
     Indication: PRODUCT USED FOR UNKNOWN INDICATION
     Dosage: 50 MG, QWK
     Route: 058
  2. TOPROL-XL [Concomitant]
     Dosage: 25 MG, UNK
  3. LIPITOR [Concomitant]
     Dosage: 10 MG, UNK
  4. PREMARIN [Concomitant]
  5. ASPIRIN [Concomitant]
     Dosage: 325 MG, UNK
  6. CLARITIN                           /00413701/ [Concomitant]
     Dosage: 10 MG, UNK

REACTIONS (3)
  - WHITE BLOOD CELL COUNT INCREASED [None]
  - DEPRESSION [None]
  - PSORIASIS [None]
